FAERS Safety Report 4619722-2 (Version None)
Quarter: 2005Q1

REPORT INFORMATION
  Report Type: 
  Country: None (occurrence: None)
  Receive Date: 20050321
  Receipt Date: 20050321
  Transmission Date: 20050727
  Serious: Yes (Disabling)
  Sender: FDA-Public Use
  Company Number: None

PATIENT
  Age: 42 Year
  Sex: Female

DRUGS (6)
  1. HALDOL [Suspect]
  2. .. [Concomitant]
  3. .. [Concomitant]
  4. LITHIUM CARBONATE [Suspect]
  5. PROLIXIN [Suspect]
  6. SEROQUEL [Suspect]

REACTIONS (2)
  - BLINDNESS [None]
  - MEDICATION ERROR [None]
